FAERS Safety Report 8829594 (Version 3)
Quarter: 2014Q2

REPORT INFORMATION
  Report Type: Spontaneous
  Country: US (occurrence: US)
  Receive Date: 20121008
  Receipt Date: 20140506
  Transmission Date: 20141212
  Serious: Yes (Hospitalization)
  Sender: FDA-Public Use
  Company Number: US-BAYER-2012-104180

PATIENT
  Age: 15 Year
  Sex: Female
  Weight: 102.4 kg

DRUGS (13)
  1. YAZ [Suspect]
     Dosage: UNK
     Dates: start: 20090724, end: 20091124
  2. FLONASE [Concomitant]
     Dosage: 16GM (INTERPRETED AS GRAMS), INHALE 2 PUFFS QD ( EVERY DAY
     Route: 045
     Dates: start: 20040910, end: 20120920
  3. VENTOLIN [Concomitant]
     Indication: DYSPNOEA
     Dosage: 17GM, INHALE 2, PUFFS Q (INTERPRETED AS EVERY) 6 TO 8 H (INTERPRETED AS HOURS) PRN ( A
     Dates: start: 20041110, end: 20120220
  4. VENTOLIN [Concomitant]
     Indication: COUGH
  5. MOTRIN [Concomitant]
     Indication: PAIN
     Dosage: 600 MG, 1 TABLE SPOON AS 6 H.
     Route: 048
     Dates: start: 20070727, end: 20110509
  6. BENADRYL [Concomitant]
     Indication: HEADACHE
     Dosage: 25 MG,1 TO 2 CAPSULES
     Route: 048
     Dates: start: 20071217, end: 20101013
  7. BENADRYL [Concomitant]
     Indication: SOMNOLENCE
  8. EPIPEN [Concomitant]
     Dosage: 0.3 MG, UNK
     Route: 030
     Dates: start: 20080225, end: 20120711
  9. AMLACTIN [Concomitant]
     Indication: SKIN DISORDER
     Dosage: 12 %, PRN
     Route: 061
     Dates: start: 20090428
  10. ALDARA [Concomitant]
     Dosage: 5 %,CREAM, ON NOSE AND CHECKS, THREE TIMES A WEEK (MONDAY WEDNESDAY, AND FRIDAY)
     Route: 061
     Dates: start: 20090430, end: 20090804
  11. AVIANE [Concomitant]
  12. MORPHINE [Concomitant]
     Indication: PAIN
     Dosage: 5 MG, UNK
  13. MIRALAX [Concomitant]

REACTIONS (14)
  - Cholecystectomy [None]
  - Cholecystitis chronic [None]
  - Pain [None]
  - Injury [None]
  - General physical health deterioration [None]
  - Emotional distress [None]
  - Anhedonia [None]
  - Anxiety [None]
  - Pain [None]
  - Malaise [None]
  - Pyrexia [None]
  - Hypertension [None]
  - Abdominal pain upper [None]
  - Mental disorder [None]
